FAERS Safety Report 20963396 (Version 2)
Quarter: 2022Q3

REPORT INFORMATION
  Report Type: Spontaneous
  Country: US (occurrence: US)
  Receive Date: 20220615
  Receipt Date: 20220702
  Transmission Date: 20221027
  Serious: No
  Sender: FDA-Public Use
  Company Number: US-TEVA-2022-US-2041701

PATIENT
  Age: 70 Year
  Sex: Male

DRUGS (3)
  1. NORTRIPTYLINE HYDROCHLORIDE [Suspect]
     Active Substance: NORTRIPTYLINE HYDROCHLORIDE
     Indication: Depression
     Dosage: 50 MILLIGRAM DAILY;
     Dates: start: 2021
  2. NORTRIPTYLINE HYDROCHLORIDE [Suspect]
     Active Substance: NORTRIPTYLINE HYDROCHLORIDE
     Dosage: 75 MILLIGRAM DAILY;
  3. NORTRIPTYLINE HYDROCHLORIDE [Suspect]
     Active Substance: NORTRIPTYLINE HYDROCHLORIDE
     Dosage: 100 MILLIGRAM DAILY; CURRENT DOSE

REACTIONS (3)
  - Constipation [Not Recovered/Not Resolved]
  - Product prescribing error [Unknown]
  - Product use issue [Unknown]
